FAERS Safety Report 13083618 (Version 1)
Quarter: 2017Q1

REPORT INFORMATION
  Report Type: Spontaneous
  Country: US (occurrence: US)
  Receive Date: 20170104
  Receipt Date: 20170104
  Transmission Date: 20170428
  Serious: No
  Sender: FDA-Public Use
  Company Number: US-ASTRAZENECA-2016SF37079

PATIENT
  Age: 781 Month
  Sex: Female
  Weight: 56.2 kg

DRUGS (1)
  1. SYMBICORT [Suspect]
     Active Substance: BUDESONIDE\FORMOTEROL FUMARATE DIHYDRATE
     Indication: ASTHMA
     Dosage: 160/4.5 MCG TWO PUFFS TWICE A DAY
     Route: 055
     Dates: start: 20160129, end: 201602

REACTIONS (4)
  - Enlarged uvula [Recovered/Resolved]
  - Intentional product misuse [Recovered/Resolved]
  - Palatal swelling [Recovered/Resolved]
  - Throat tightness [Unknown]

NARRATIVE: CASE EVENT DATE: 201602
